FAERS Safety Report 22076456 (Version 2)
Quarter: 2025Q4

REPORT INFORMATION
  Report Type: Spontaneous
  Country: EU (occurrence: EU)
  Receive Date: 20230309
  Receipt Date: 20251125
  Transmission Date: 20260117
  Serious: Yes (Other)
  Sender: AMGEN
  Company Number: EU-AMGEN-FRASP2023037658

PATIENT

DRUGS (1)
  1. ADALIMUMAB [Suspect]
     Active Substance: ADALIMUMAB
     Indication: Crohn^s disease
     Dosage: UNK
     Route: 065

REACTIONS (2)
  - Crohn^s disease [Unknown]
  - Treatment failure [Unknown]
